FAERS Safety Report 8215547-X (Version None)
Quarter: 2012Q1

REPORT INFORMATION
  Report Type: 
  Country: None (occurrence: None)
  Receive Date: 20120316
  Receipt Date: 20120305
  Transmission Date: 20120608
  Serious: Yes (Death, Hospitalization)
  Sender: FDA-Public Use
  Company Number: DE-ROCHE-1046036

PATIENT
  Sex: Female

DRUGS (3)
  1. PREDNISOLONE [Concomitant]
  2. ALENDRONIC ACID [Concomitant]
  3. MABTHERA [Suspect]
     Indication: RHEUMATOID ARTHRITIS
     Dates: start: 20091001

REACTIONS (7)
  - MULTI-ORGAN FAILURE [None]
  - ANAEMIA [None]
  - HYPOGLYCAEMIA [None]
  - PNEUMONIA [None]
  - CALCULUS URETERIC [None]
  - DISSEMINATED INTRAVASCULAR COAGULATION [None]
  - UROSEPSIS [None]
